FAERS Safety Report 24660401 (Version 6)
Quarter: 2025Q1

REPORT INFORMATION
  Report Type: Spontaneous
  Country: CZ (occurrence: CZ)
  Receive Date: 20241125
  Receipt Date: 20250204
  Transmission Date: 20250409
  Serious: Yes (Death, Hospitalization, Other)
  Sender: NOVARTIS
  Company Number: CZ-002147023-NVSC2024CZ225228

PATIENT
  Age: 45 Year
  Sex: Female

DRUGS (69)
  1. CARBAMAZEPINE [Interacting]
     Active Substance: CARBAMAZEPINE
     Indication: Epilepsy
     Dosage: 300 MG, TID (2-1-0-2)
     Route: 048
  2. CARBAMAZEPINE [Interacting]
     Active Substance: CARBAMAZEPINE
     Dosage: 300 MG, BID (2-0-2)
     Route: 048
  3. CARBAMAZEPINE [Interacting]
     Active Substance: CARBAMAZEPINE
     Dosage: 300 MG, BID (2-0-0-2)
     Route: 048
  4. CARBAMAZEPINE [Interacting]
     Active Substance: CARBAMAZEPINE
     Dosage: 1200 MG, QD (600 MG, BID)
     Route: 048
  5. CIPROFLOXACIN [Suspect]
     Active Substance: CIPROFLOXACIN
     Indication: Pneumonia legionella
     Route: 065
  6. QUETIAPINE [Interacting]
     Active Substance: QUETIAPINE
     Indication: Product used for unknown indication
     Dosage: 300 MG, QD (0?0?0?1) (TABLET)
     Route: 048
  7. QUETIAPINE [Interacting]
     Active Substance: QUETIAPINE
     Dosage: 200 MG, QD (1?0?0)
     Route: 048
  8. QUETIAPINE [Interacting]
     Active Substance: QUETIAPINE
     Dosage: 800 MG, QD/800 MG, QD
     Route: 065
  9. QUETIAPINE [Interacting]
     Active Substance: QUETIAPINE
     Dosage: 0-0-0-1
     Route: 048
  10. QUETIAPINE [Interacting]
     Active Substance: QUETIAPINE
     Dosage: 200 MILLIGRAM, QD (1-0-0)
     Route: 048
  11. QUETIAPINE [Interacting]
     Active Substance: QUETIAPINE
     Dosage: 200 MG(1-0-0),  300 MG(0-0-0-1)
     Route: 048
  12. QUETIAPINE [Interacting]
     Active Substance: QUETIAPINE
     Dosage: 200 MG(1-0-0),  300 MG(0-0-0-1)
     Route: 048
  13. DECADRON (DEXAMETHASONE SODIUM PHOSPHATE) [Interacting]
     Active Substance: DEXAMETHASONE SODIUM PHOSPHATE
     Indication: Constipation
     Route: 065
  14. CLARITHROMYCIN [Interacting]
     Active Substance: CLARITHROMYCIN
     Indication: C-reactive protein increased
     Route: 065
  15. CLARITHROMYCIN [Interacting]
     Active Substance: CLARITHROMYCIN
     Indication: Procalcitonin increased
     Route: 065
  16. CLARITHROMYCIN [Interacting]
     Active Substance: CLARITHROMYCIN
     Indication: Lung infiltration
     Route: 065
  17. CLARITHROMYCIN [Interacting]
     Active Substance: CLARITHROMYCIN
     Indication: C-reactive protein increased
  18. CLARITHROMYCIN [Interacting]
     Active Substance: CLARITHROMYCIN
     Indication: COVID-19
  19. CLARITHROMYCIN [Interacting]
     Active Substance: CLARITHROMYCIN
     Indication: C-reactive protein increased
  20. CLARITHROMYCIN [Interacting]
     Active Substance: CLARITHROMYCIN
     Indication: Procalcitonin increased
  21. CLARITHROMYCIN [Interacting]
     Active Substance: CLARITHROMYCIN
     Indication: Lung infiltration
  22. CLARITHROMYCIN [Interacting]
     Active Substance: CLARITHROMYCIN
     Indication: C-reactive protein increased
  23. CLARITHROMYCIN [Interacting]
     Active Substance: CLARITHROMYCIN
     Indication: Procalcitonin increased
  24. CLARITHROMYCIN [Interacting]
     Active Substance: CLARITHROMYCIN
     Indication: Lung infiltration
  25. HALOPERIDOL [Suspect]
     Active Substance: HALOPERIDOL
     Indication: Product used for unknown indication
     Route: 048
  26. HALOPERIDOL [Suspect]
     Active Substance: HALOPERIDOL
     Dosage: 1.5 MILLIGRAM, TID ( 1-1-2,)
     Route: 048
  27. HALOPERIDOL [Suspect]
     Active Substance: HALOPERIDOL
     Route: 048
  28. HALOPERIDOL [Suspect]
     Active Substance: HALOPERIDOL
     Dosage: 1.5 MG, 1-1-2
     Route: 048
  29. HALOPERIDOL [Suspect]
     Active Substance: HALOPERIDOL
     Dosage: 1.5 MG, 1-1-2
     Route: 048
  30. HALOPERIDOL [Suspect]
     Active Substance: HALOPERIDOL
     Route: 048
  31. MELPERONE [Suspect]
     Active Substance: MELPERONE
     Indication: Product used for unknown indication
     Dosage: 25 MG, QID (1-1-2-3)
     Route: 048
  32. MELPERONE [Suspect]
     Active Substance: MELPERONE
     Route: 048
  33. MELPERONE [Suspect]
     Active Substance: MELPERONE
     Route: 048
  34. MELPERONE [Suspect]
     Active Substance: MELPERONE
     Route: 048
  35. MELPERONE [Suspect]
     Active Substance: MELPERONE
     Dosage: 25 MG, 1-1-2-3
     Route: 048
  36. MELPERONE [Suspect]
     Active Substance: MELPERONE
     Dosage: 25 MG, 1-1-2-3
     Route: 048
  37. MELPERONE [Suspect]
     Active Substance: MELPERONE
     Route: 048
  38. LEVOTHYROXINE [Concomitant]
     Active Substance: LEVOTHYROXINE
     Indication: Hypothyroidism
     Dosage: 125 ?G, 1-0-0, MONDAY-FRIDAY
     Route: 048
  39. LEVOTHYROXINE [Concomitant]
     Active Substance: LEVOTHYROXINE
     Dosage: 125 UG, QD (SATURDAY-SUNDAY) (1.5-0-0)
     Route: 048
  40. LEVOTHYROXINE [Concomitant]
     Active Substance: LEVOTHYROXINE
     Dosage: UNK, QD (1.5-0-0 SAT-SUN)
     Route: 048
  41. LEVOTHYROXINE [Concomitant]
     Active Substance: LEVOTHYROXINE
     Route: 048
  42. LEVOTHYROXINE [Concomitant]
     Active Substance: LEVOTHYROXINE
     Route: 048
  43. LEVOTHYROXINE [Concomitant]
     Active Substance: LEVOTHYROXINE
     Route: 048
  44. LEVOTHYROXINE [Concomitant]
     Active Substance: LEVOTHYROXINE
     Dosage: 125 UG, QD (MONDAY TO FRIDAY) (1-0-0)
     Route: 048
  45. LEVOTHYROXINE [Concomitant]
     Active Substance: LEVOTHYROXINE
     Dosage: 1.5 UG, QD (SA-SU)
     Route: 048
  46. LEVOTHYROXINE [Concomitant]
     Active Substance: LEVOTHYROXINE
     Route: 048
  47. LEVOTHYROXINE [Concomitant]
     Active Substance: LEVOTHYROXINE
     Route: 048
  48. LEVOTHYROXINE [Concomitant]
     Active Substance: LEVOTHYROXINE
     Dosage: 125 ?G, 1.5-0-0, SATURDAY-SUNDAY
     Route: 048
  49. LEVOTHYROXINE [Concomitant]
     Active Substance: LEVOTHYROXINE
     Dosage: 125 UG, QD (SATURDAY-SUNDAY) (1.5-0-0)
     Route: 048
  50. LEVOMEPROMAZINE [Concomitant]
     Active Substance: LEVOMEPROMAZINE
     Indication: Product used for unknown indication
     Dosage: 25 MG, 1-1-0-1
     Route: 048
  51. LEVOMEPROMAZINE [Concomitant]
     Active Substance: LEVOMEPROMAZINE
     Route: 048
  52. LEVOMEPROMAZINE [Concomitant]
     Active Substance: LEVOMEPROMAZINE
     Dosage: 25 MG, TID (1?1?0?1)
     Route: 048
  53. VALPROATE [Concomitant]
     Active Substance: VALPROIC ACID
     Indication: Epilepsy
     Dosage: 500 MG, 1-0-1
     Route: 048
  54. VALPROATE [Concomitant]
     Active Substance: VALPROIC ACID
     Route: 048
  55. VALPROATE [Concomitant]
     Active Substance: VALPROIC ACID
     Dosage: 500 MG BID (1?0?1)
     Route: 048
  56. DIAZEPAM [Concomitant]
     Active Substance: DIAZEPAM
     Indication: Epilepsy
     Dosage: 10 MG, 1-1-0-1
     Route: 048
  57. DIAZEPAM [Concomitant]
     Active Substance: DIAZEPAM
     Dosage: 10 MG, TID
     Route: 048
  58. LACTULOSE [Concomitant]
     Active Substance: LACTULOSE
     Indication: Constipation
     Dosage: UNK, QD (UNK, TID (TABLE SPOON))
     Route: 065
  59. LACTULOSE [Concomitant]
     Active Substance: LACTULOSE
     Route: 065
  60. LACTULOSE [Concomitant]
     Active Substance: LACTULOSE
     Route: 065
  61. LACTULOSE [Concomitant]
     Active Substance: LACTULOSE
     Route: 065
  62. LACTULOSE [Concomitant]
     Active Substance: LACTULOSE
     Route: 048
  63. LACTULOSE [Concomitant]
     Active Substance: LACTULOSE
     Dosage: 1 TBSP, 1-1-1
     Route: 048
  64. LACTULOSE [Concomitant]
     Active Substance: LACTULOSE
     Route: 048
  65. CALCIUM\VITAMIN D [Concomitant]
     Active Substance: CALCIUM\VITAMIN D
     Indication: Constipation
     Dosage: UNK, QD (0-0-1)
     Route: 065
  66. CALCIUM\VITAMIN D [Concomitant]
     Active Substance: CALCIUM\VITAMIN D
     Route: 065
  67. CALCIUM\VITAMIN D [Concomitant]
     Active Substance: CALCIUM\VITAMIN D
     Route: 048
  68. CALCIUM\VITAMIN D [Concomitant]
     Active Substance: CALCIUM\VITAMIN D
     Route: 065
  69. CALCIUM\VITAMIN D [Concomitant]
     Active Substance: CALCIUM\VITAMIN D
     Route: 065

REACTIONS (9)
  - Torsade de pointes [Fatal]
  - Leukopenia [Unknown]
  - Thrombocytopenia [Unknown]
  - Hyponatraemia [Recovered/Resolved]
  - Toxicity to various agents [Recovered/Resolved]
  - Drug interaction [Recovered/Resolved]
  - Electrocardiogram QT prolonged [Unknown]
  - Drug level increased [Unknown]
  - Drug ineffective [Unknown]
